FAERS Safety Report 4277434-1 (Version None)
Quarter: 2004Q1

REPORT INFORMATION
  Report Type: 
  Country: None (occurrence: None)
  Receive Date: 20040122
  Receipt Date: 20030925
  Transmission Date: 20041129
  Serious: Yes (Hospitalization)
  Sender: FDA-Public Use
  Company Number: DE-BRISTOL-MYERS SQUIBB COMPANY-12394268

PATIENT
  Age: 70 Year
  Sex: Female
  Weight: 80 kg

DRUGS (4)
  1. TAXOL [Suspect]
     Indication: OVARIAN CANCER
     Dosage: INITIATED ON 22-MAY-2003.
     Route: 042
     Dates: start: 20030827, end: 20030827
  2. CARBOPLATIN [Suspect]
     Indication: OVARIAN CANCER
     Dosage: INITIATED ON 22-MAY-2003
     Route: 042
     Dates: start: 20030827, end: 20030827
  3. GEMZAR [Suspect]
     Indication: OVARIAN CANCER
     Dosage: INITIATED ON 22-MAY-2003.
     Route: 042
     Dates: start: 20030827, end: 20030827
  4. AXURA [Concomitant]
     Indication: DEMENTIA ALZHEIMER'S TYPE

REACTIONS (2)
  - DEPRESSION [None]
  - NEUROPATHY PERIPHERAL [None]
